FAERS Safety Report 14268213 (Version 1)
Quarter: 2017Q4

REPORT INFORMATION
  Report Type: Spontaneous
  Country: US (occurrence: US)
  Receive Date: 20171211
  Receipt Date: 20171211
  Transmission Date: 20180321
  Serious: Yes (Other)
  Sender: FDA-Public Use
  Company Number: US-IPSEN BIOPHARMACEUTICALS, INC.-2017-15507

PATIENT
  Age: 40 Year
  Sex: Female

DRUGS (1)
  1. DYSPORT [Suspect]
     Active Substance: ABOBOTULINUMTOXINA
     Indication: SKIN WRINKLING
     Dosage: 47 UNITS
     Route: 030
     Dates: start: 20171204, end: 20171204

REACTIONS (4)
  - Wrong technique in product usage process [Unknown]
  - Injection site swelling [Recovered/Resolved]
  - Type I hypersensitivity [Unknown]
  - Injection site bruising [Not Recovered/Not Resolved]

NARRATIVE: CASE EVENT DATE: 20171204
